FAERS Safety Report 24368912 (Version 1)
Quarter: 2024Q3

REPORT INFORMATION
  Report Type: Report from Study
  Country: US (occurrence: US)
  Receive Date: 20240927
  Receipt Date: 20240927
  Transmission Date: 20241016
  Serious: Yes (Other)
  Sender: ABBVIE
  Company Number: US-ABBVIE-5937770

PATIENT
  Sex: Male

DRUGS (4)
  1. SKYRIZI [Suspect]
     Active Substance: RISANKIZUMAB-RZAA
     Indication: Crohn^s disease
     Dosage: WEEK 12 THEN EVERY 8 WEEKS?FORM STRENGTH: 360MG/2.4ML
     Route: 058
     Dates: start: 20240819, end: 20240819
  2. SKYRIZI [Suspect]
     Active Substance: RISANKIZUMAB-RZAA
     Indication: Crohn^s disease
     Dosage: WEEK 0?FORM STRENGTH: 600MG/10ML
     Route: 042
     Dates: start: 20240506, end: 20240506
  3. SKYRIZI [Suspect]
     Active Substance: RISANKIZUMAB-RZAA
     Indication: Crohn^s disease
     Dosage: WEEK 4?FORM STRENGTH: 600MG/10ML
     Route: 042
     Dates: start: 20240603, end: 20240603
  4. SKYRIZI [Suspect]
     Active Substance: RISANKIZUMAB-RZAA
     Indication: Crohn^s disease
     Dosage: WEEK 8?FORM STRENGTH: 600MG/10ML
     Route: 042
     Dates: start: 20240701, end: 20240701

REACTIONS (2)
  - Goitre [Unknown]
  - Secondary amyloidosis [Unknown]

NARRATIVE: CASE EVENT DATE: 20240101
